FAERS Safety Report 7401597-X (Version None)
Quarter: 2011Q2

REPORT INFORMATION
  Report Type: 
  Country: None (occurrence: None)
  Receive Date: 20110408
  Receipt Date: 20110404
  Transmission Date: 20111010
  Serious: No
  Sender: FDA-Public Use
  Company Number: US-BIOGENIDEC-2011BI006145

PATIENT
  Sex: Female

DRUGS (2)
  1. TYSABRI [Suspect]
     Indication: MULTIPLE SCLEROSIS
     Route: 042
     Dates: start: 20101220
  2. TYSABRI [Suspect]
     Route: 042
     Dates: start: 20071105, end: 20090108

REACTIONS (6)
  - ALOPECIA [None]
  - SEPSIS [None]
  - DYSURIA [None]
  - BRONCHITIS [None]
  - DRUG INEFFECTIVE [None]
  - SINUSITIS [None]
